FAERS Safety Report 18401187 (Version 1)
Quarter: 2020Q4

REPORT INFORMATION
  Report Type: Other
  Country: CA (occurrence: CA)
  Receive Date: 20201020
  Receipt Date: 20201020
  Transmission Date: 20210114
  Serious: Yes (Other)
  Sender: FDA-Public Use
  Company Number: CA-CELLTRION INC.-2020CA028830

PATIENT

DRUGS (9)
  1. MODAFINIL. [Concomitant]
     Active Substance: MODAFINIL
  2. RITUXIMAB (UNKNOWN) [Suspect]
     Active Substance: RITUXIMAB
     Indication: MULTIPLE SCLEROSIS
     Dosage: 1000 MG
     Route: 042
  3. ZOPICLONE [Concomitant]
     Active Substance: ZOPICLONE
  4. AMINOPYRIDINE [Concomitant]
     Active Substance: DALFAMPRIDINE
  5. CITALOPRAM [Concomitant]
     Active Substance: CITALOPRAM HYDROBROMIDE
  6. VITAMIN B [Concomitant]
     Active Substance: VITAMIN B
  7. BACLOFEN. [Concomitant]
     Active Substance: BACLOFEN
  8. QUETIAPINE. [Concomitant]
     Active Substance: QUETIAPINE
  9. METHYLPHENIDATE. [Concomitant]
     Active Substance: METHYLPHENIDATE

REACTIONS (2)
  - Off label use [Unknown]
  - Weight decreased [Unknown]
